FAERS Safety Report 21480366 (Version 1)
Quarter: 2022Q4

REPORT INFORMATION
  Report Type: Spontaneous
  Country: CN (occurrence: CN)
  Receive Date: 20221019
  Receipt Date: 20221019
  Transmission Date: 20230113
  Serious: Yes (Hospitalization, Other)
  Sender: FDA-Public Use
  Company Number: CN-PFIZER INC-PV202200083511

PATIENT
  Age: 11 Day
  Sex: Male
  Weight: 4 kg

DRUGS (4)
  1. FLUCONAZOLE [Suspect]
     Active Substance: FLUCONAZOLE
     Indication: Antifungal treatment
     Dosage: 13.5 MG, 1X/DAY
     Route: 041
     Dates: start: 20221006, end: 20221015
  2. LINEZOLID [Suspect]
     Active Substance: LINEZOLID
     Indication: Anti-infective therapy
     Dosage: 0.045 G, 3X/DAY
     Route: 048
     Dates: start: 20221006, end: 20221015
  3. MEROPENEM [Suspect]
     Active Substance: MEROPENEM
     Indication: Anti-infective therapy
     Dosage: 0.18 G, 3X/DAY
     Route: 041
     Dates: start: 20221006, end: 20221015
  4. SODIUM CHLORIDE [Concomitant]
     Active Substance: SODIUM CHLORIDE
     Indication: Vehicle solution use
     Dosage: 8 ML, 3X/DAY
     Route: 041
     Dates: start: 20221006, end: 20221012

REACTIONS (1)
  - Rash erythematous [Recovering/Resolving]

NARRATIVE: CASE EVENT DATE: 20221012
